FAERS Safety Report 6050651-6 (Version None)
Quarter: 2009Q1

REPORT INFORMATION
  Report Type: 
  Country: None (occurrence: None)
  Receive Date: 20090121
  Receipt Date: 20090115
  Transmission Date: 20090719
  Serious: Yes (Other)
  Sender: FDA-Public Use
  Company Number: 2008SP023062

PATIENT
  Age: 50 Year
  Sex: Male
  Weight: 70 kg

DRUGS (4)
  1. INTERFERON ALFA [Suspect]
     Indication: RENAL CANCER
     Dates: start: 20070101
  2. ZOMETA [Suspect]
     Indication: RENAL CANCER
     Dosage: 4 MG, QM; INDRP
     Route: 041
     Dates: start: 20060101, end: 20080401
  3. NEXAVAR [Suspect]
     Indication: RENAL CANCER
     Dosage: PO
     Route: 048
     Dates: start: 20070101
  4. STUTENT (SUNITINIB) [Suspect]
     Indication: RENAL CANCER
     Dosage: PO
     Route: 048
     Dates: start: 20071101

REACTIONS (5)
  - CONDITION AGGRAVATED [None]
  - IMPAIRED HEALING [None]
  - INFECTION [None]
  - OSTEOMYELITIS [None]
  - OSTEONECROSIS [None]
